FAERS Safety Report 7921189-3 (Version None)
Quarter: 2011Q4

REPORT INFORMATION
  Report Type: 
  Country: None (occurrence: None)
  Receive Date: 20111117
  Receipt Date: 20111107
  Transmission Date: 20120403
  Serious: No
  Sender: FDA-Public Use
  Company Number: US-B.I. PHARMACEUTICALS,INC./RIDGEFIELD-2011-BP-24190BP

PATIENT
  Age: 90 Year
  Sex: Female

DRUGS (3)
  1. PRADAXA [Suspect]
     Indication: ATRIAL FIBRILLATION
     Dosage: 300 MG
     Dates: start: 20110801
  2. METOPROLOL TARTRATE [Concomitant]
     Dates: start: 20030101
  3. LEVOXYL [Concomitant]
     Dates: start: 20030101

REACTIONS (2)
  - EPISTAXIS [None]
  - PROTHROMBIN TIME PROLONGED [None]
